FAERS Safety Report 6153487-0 (Version None)
Quarter: 2009Q2

REPORT INFORMATION
  Report Type: 
  Country: None (occurrence: None)
  Receive Date: 20090413
  Receipt Date: 20080605
  Transmission Date: 20091009
  Serious: No
  Sender: FDA-Public Use
  Company Number: US-ABBOTT-08P-163-0455354-00

PATIENT
  Sex: Female

DRUGS (3)
  1. LUPRON [Suspect]
     Indication: ENDOMETRIOSIS
     Dates: start: 20080425
  2. LOW DOSE HORMONE PILL [Concomitant]
     Indication: ADVERSE DRUG REACTION
     Dates: start: 20080425
  3. LOW DOSE HORMONE PILL [Concomitant]
     Indication: PROPHYLAXIS

REACTIONS (17)
  - ARTHRALGIA [None]
  - ASTHENIA [None]
  - BALANCE DISORDER [None]
  - DIZZINESS [None]
  - DYSARTHRIA [None]
  - ENDOMETRIOSIS [None]
  - FATIGUE [None]
  - GAIT DISTURBANCE [None]
  - HEADACHE [None]
  - HYPERTENSION [None]
  - HYPOAESTHESIA [None]
  - HYPOAESTHESIA FACIAL [None]
  - HYPOAESTHESIA ORAL [None]
  - NAUSEA [None]
  - PAIN [None]
  - SPEECH DISORDER [None]
  - VISION BLURRED [None]
